FAERS Safety Report 18906102 (Version 2)
Quarter: 2021Q2

REPORT INFORMATION
  Report Type: Report from Study
  Country: FR (occurrence: FR)
  Receive Date: 20210217
  Receipt Date: 20210527
  Transmission Date: 20210717
  Serious: Yes (Other)
  Sender: FDA-Public Use
  Company Number: FR-PFIZER INC-2021135365

PATIENT
  Age: 34 Year
  Sex: Female
  Weight: 155 kg

DRUGS (14)
  1. CIPLOX [CIPROFLOXACIN HYDROCHLORIDE] [Concomitant]
  2. BILASKA [Concomitant]
     Active Substance: BILASTINE
     Dates: start: 20191022
  3. FOLIC ACID. [Suspect]
     Active Substance: FOLIC ACID
     Indication: PSORIASIS
     Dosage: 10 MG, WEEKLY
     Dates: start: 20200523
  4. CLOBEX [CLOBETASOL PROPIONATE] [Concomitant]
  5. NASACORT [Concomitant]
     Active Substance: TRIAMCINOLONE ACETONIDE
     Dates: start: 20191022
  6. ANTALYRE [Concomitant]
  7. METHOTREXATE SODIUM. [Suspect]
     Active Substance: METHOTREXATE SODIUM
     Indication: PSORIASIS
     Dosage: 10 MG, WEEKLY
     Dates: start: 20200523
  8. LAMALINE [ATROPA BELLADONNA EXTRACT;CAFFEINE;PAPAVER SOMNIFERUM TINCTU [Concomitant]
     Active Substance: ACETAMINOPHEN\BELLADONNA LEAF\CAFFEINE\OPIUM
  9. TRAMADOL. [Concomitant]
     Active Substance: TRAMADOL
     Dates: start: 2017
  10. DIPROSONE [Concomitant]
     Active Substance: BETAMETHASONE DIPROPIONATE
  11. STELARA [Suspect]
     Active Substance: USTEKINUMAB
     Indication: PSORIASIS
     Dosage: 90 MG, CYCLIC (EVERY 12 WEEKS)
     Route: 058
     Dates: start: 20191024
  12. VENTOLINE [SALBUTAMOL] [Concomitant]
     Active Substance: ALBUTEROL SULFATE
     Dates: start: 2016
  13. OTEZLA [Suspect]
     Active Substance: APREMILAST
     Indication: PSORIASIS
     Dosage: 60 MG, 1X/DAY
     Dates: start: 2019
  14. PROZAC [Concomitant]
     Active Substance: FLUOXETINE HYDROCHLORIDE
     Dates: start: 20191010

REACTIONS (2)
  - Cystitis [Not Recovered/Not Resolved]
  - COVID-19 [Recovered/Resolved]

NARRATIVE: CASE EVENT DATE: 202002
